FAERS Safety Report 5849772-X (Version None)
Quarter: 2008Q3

REPORT INFORMATION
  Report Type: 
  Country: None (occurrence: None)
  Receive Date: 20080819
  Receipt Date: 20080808
  Transmission Date: 20090109
  Serious: Yes (Hospitalization)
  Sender: FDA-Public Use
  Company Number: US-MERCK-0705USA05347

PATIENT
  Age: 67 Year
  Sex: Female
  Weight: 59 kg

DRUGS (1)
  1. FOSAMAX [Suspect]
     Indication: OSTEOPOROSIS
     Route: 048
     Dates: end: 20060101

REACTIONS (18)
  - ABDOMINAL PAIN LOWER [None]
  - ABSCESS [None]
  - ANXIETY [None]
  - BRONCHITIS [None]
  - DEPRESSION [None]
  - DIVERTICULITIS [None]
  - FALL [None]
  - HAND FRACTURE [None]
  - HYPERSENSITIVITY [None]
  - HYPERTENSION [None]
  - HYPONATRAEMIA [None]
  - MUSCULOSKELETAL STIFFNESS [None]
  - OSTEOARTHRITIS [None]
  - PAIN IN JAW [None]
  - SINUS DISORDER [None]
  - SINUSITIS [None]
  - TOOTH INFECTION [None]
  - TOOTH LOSS [None]
